FAERS Safety Report 18820942 (Version 1)
Quarter: 2021Q1

REPORT INFORMATION
  Report Type: Spontaneous
  Country: US (occurrence: US)
  Receive Date: 20210201
  Receipt Date: 20210201
  Transmission Date: 20210419
  Serious: No
  Sender: FDA-Public Use
  Company Number: None

PATIENT
  Sex: Male

DRUGS (3)
  1. HUMIRA [Suspect]
     Active Substance: ADALIMUMAB
     Indication: CIRRHOSIS ALCOHOLIC
     Route: 058
     Dates: start: 20201021
  2. HUMIRA [Suspect]
     Active Substance: ADALIMUMAB
     Indication: PSORIATIC ARTHROPATHY
     Route: 058
     Dates: start: 20201021
  3. HUMIRA [Suspect]
     Active Substance: ADALIMUMAB
     Indication: THROMBOCYTOPENIA
     Route: 058
     Dates: start: 20201021

REACTIONS (1)
  - Drug hypersensitivity [None]
